FAERS Safety Report 4313817-9 (Version None)
Quarter: 2004Q1

REPORT INFORMATION
  Report Type: 
  Country: None (occurrence: None)
  Receive Date: 20040305
  Receipt Date: 20040220
  Transmission Date: 20041129
  Serious: Yes (Other)
  Sender: FDA-Public Use
  Company Number: BR-SHR-04-021527

PATIENT
  Age: 65 Year
  Sex: Male

DRUGS (5)
  1. FLUDARA [Suspect]
     Indication: LYMPHOPROLIFERATIVE DISORDER
     Dosage: SEE IMAGE
     Route: 042
     Dates: start: 20010101, end: 20010101
  2. FLUDARA [Suspect]
     Indication: LYMPHOPROLIFERATIVE DISORDER
     Dosage: SEE IMAGE
     Route: 042
     Dates: start: 20040101, end: 20040101
  3. RITUXAN [Suspect]
     Indication: LYMPHOPROLIFERATIVE DISORDER
     Dosage: 500 MG, 2 DOSES, INTRAVENOUS
     Route: 042
     Dates: start: 20040101, end: 20040101
  4. DILACORON [Concomitant]
  5. DIOVAN ^NOVARTIS^ (VALSARTAN) [Concomitant]

REACTIONS (2)
  - CHOLANGITIS [None]
  - METASTASES TO LIVER [None]
